FAERS Safety Report 25691211 (Version 1)
Quarter: 2025Q3

REPORT INFORMATION
  Report Type: Spontaneous
  Country: GB (occurrence: GB)
  Receive Date: 20250818
  Receipt Date: 20250818
  Transmission Date: 20251021
  Serious: Yes (Other)
  Sender: ASCEND THERAPEUTICS US, LLC
  Company Number: GB-Ascend Therapeutics US, LLC-2182710

PATIENT

DRUGS (3)
  1. ESTROGEL [Suspect]
     Active Substance: ESTRADIOL
     Indication: Hormone replacement therapy
  2. ESTRADIOL [Suspect]
     Active Substance: ESTRADIOL
  3. UTROGESTAN [Suspect]
     Active Substance: PROGESTERONE

REACTIONS (11)
  - Urinary tract disorder [Unknown]
  - Headache [Unknown]
  - Nausea [Unknown]
  - Abdominal pain upper [Unknown]
  - Fatigue [Unknown]
  - Somnolence [Unknown]
  - Hot flush [Unknown]
  - Abdominal distension [Unknown]
  - Insomnia [Unknown]
  - Depression [Unknown]
  - Arthralgia [Unknown]
